FAERS Safety Report 7765001-4 (Version None)
Quarter: 2011Q3

REPORT INFORMATION
  Report Type: 
  Country: None (occurrence: None)
  Receive Date: 20110921
  Receipt Date: 20110704
  Transmission Date: 20111222
  Serious: Yes (Hospitalization)
  Sender: FDA-Public Use
  Company Number: LT-JNJFOC-20110906243

PATIENT
  Age: 31 Year
  Sex: Female

DRUGS (3)
  1. SUDAFED 12 HOUR [Suspect]
     Indication: SUICIDE ATTEMPT
     Route: 065
     Dates: start: 20110520, end: 20110520
  2. SUDAFED 12 HOUR [Suspect]
     Route: 065
  3. XANAX [Suspect]
     Indication: SUICIDE ATTEMPT
     Route: 048
     Dates: start: 20110520, end: 20110520

REACTIONS (3)
  - SOMNOLENCE [None]
  - SUICIDE ATTEMPT [None]
  - NAUSEA [None]
